FAERS Safety Report 8217191-7 (Version None)
Quarter: 2012Q1

REPORT INFORMATION
  Report Type: 
  Country: None (occurrence: None)
  Receive Date: 20120319
  Receipt Date: 20100205
  Transmission Date: 20120608
  Serious: No
  Sender: FDA-Public Use
  Company Number: 2010BI004372

PATIENT
  Age: 56 Year
  Sex: Female

DRUGS (3)
  1. TYSABRI [Suspect]
     Indication: MULTIPLE SCLEROSIS
     Route: 042
     Dates: start: 20091005
  2. LOPRESSOR [Concomitant]
     Indication: HYPERTENSION
  3. AVONEX [Concomitant]
     Indication: MULTIPLE SCLEROSIS
     Route: 030
     Dates: start: 20000306

REACTIONS (10)
  - NASOPHARYNGITIS [None]
  - PARAESTHESIA [None]
  - PERIPHERAL COLDNESS [None]
  - MUSCLE SPASMS [None]
  - PAIN IN EXTREMITY [None]
  - HYPERTENSION [None]
  - DRUG INEFFECTIVE [None]
  - NAUSEA [None]
  - ALOPECIA [None]
  - MULTIPLE SCLEROSIS [None]
